FAERS Safety Report 12357146 (Version 1)
Quarter: 2016Q2

REPORT INFORMATION
  Report Type: Spontaneous
  Country: US (occurrence: US)
  Receive Date: 20160511
  Receipt Date: 20160511
  Transmission Date: 20160815
  Serious: No
  Sender: FDA-Public Use
  Company Number: US-ARBOR PHARMACEUTICALS, LLC-US-2016ARB000124

PATIENT

DRUGS (25)
  1. DILTIAZEM                          /00489702/ [Concomitant]
     Indication: ATRIAL FIBRILLATION
  2. SPIRIVA [Concomitant]
     Active Substance: TIOTROPIUM BROMIDE MONOHYDRATE
     Indication: CHRONIC OBSTRUCTIVE PULMONARY DISEASE
  3. VALIUM [Concomitant]
     Active Substance: DIAZEPAM
     Indication: BACK PAIN
     Dosage: UNK
  4. LANTUS [Concomitant]
     Active Substance: INSULIN GLARGINE
     Indication: TYPE 2 DIABETES MELLITUS
     Dosage: 60 IU, QD, BEFORE BED
  5. ADVAIR HFA [Concomitant]
     Active Substance: FLUTICASONE PROPIONATE\SALMETEROL XINAFOATE
     Indication: SLEEP APNOEA SYNDROME
     Dosage: 250/50 MCG, ONE PUFF IN THE MORNING AND ONE AT NIGHT
  6. HYDROCHLOROTHIAZIDE. [Concomitant]
     Active Substance: HYDROCHLOROTHIAZIDE
     Indication: ATRIAL FIBRILLATION
  7. PEPCID [Concomitant]
     Active Substance: FAMOTIDINE
     Indication: BARRETT^S OESOPHAGUS
     Dosage: 40 MG, BID
     Dates: start: 20030922
  8. DORZOLAMIDE TIMOLOL [Concomitant]
     Active Substance: DORZOLAMIDE
     Indication: GLAUCOMA
     Dosage: ONE DROP IN EACH EYE ONCE IN THE MORNING AND ONCE IN NIGHT
  9. HYDROCHLOROTHIAZIDE. [Concomitant]
     Active Substance: HYDROCHLOROTHIAZIDE
     Indication: HYPERTENSION
  10. SPIRIVA [Concomitant]
     Active Substance: TIOTROPIUM BROMIDE MONOHYDRATE
     Indication: SLEEP APNOEA SYNDROME
     Dosage: 18 MCG, IN THE MORNING
     Dates: start: 20140317
  11. ELIQUIS [Concomitant]
     Active Substance: APIXABAN
     Indication: ANTICOAGULANT THERAPY
     Dosage: 5 MG, BID, ONE TABLET IN MORNING, ONE AT NIGHT
     Dates: start: 20150625
  12. AMARYL [Concomitant]
     Active Substance: GLIMEPIRIDE
     Indication: TYPE 2 DIABETES MELLITUS
     Dosage: 4 MG, BID, ONE AT NIGHT, ONE IN MORNING
  13. VICTOZA [Concomitant]
     Active Substance: LIRAGLUTIDE
     Indication: TYPE 2 DIABETES MELLITUS
     Dosage: 1.8 MG, UNK
  14. DILTIAZEM                          /00489702/ [Concomitant]
     Indication: HYPERTENSION
     Dosage: 240 MG, NIGHTLY
  15. ELIQUIS [Concomitant]
     Active Substance: APIXABAN
     Indication: HYPERTENSION
  16. HYDROCHLOROTHIAZIDE. [Concomitant]
     Active Substance: HYDROCHLOROTHIAZIDE
     Indication: PRODUCT USED FOR UNKNOWN INDICATION
     Dosage: 25 MG, IN THE MORNING
  17. METFORMIN HCL [Concomitant]
     Active Substance: METFORMIN HYDROCHLORIDE
     Indication: TYPE 2 DIABETES MELLITUS
     Dosage: 1000 MG, BID, ONE IN THE MORNING AND ONE AT NIGHT
  18. ZETIA [Concomitant]
     Active Substance: EZETIMIBE
     Indication: DIABETES MELLITUS
     Dosage: 10 MG, BEFORE BED
     Dates: start: 20060619
  19. LISINOPRIL. [Concomitant]
     Active Substance: LISINOPRIL
     Indication: HYPERTENSION
     Dosage: 20 MG, IN THE MORNING
     Dates: start: 20120920
  20. ZETIA [Concomitant]
     Active Substance: EZETIMIBE
     Indication: BLOOD CHOLESTEROL
  21. PERCOCET                           /00446701/ [Concomitant]
     Active Substance: ACETAMINOPHEN\OXYCODONE HYDROCHLORIDE\OXYCODONE TEREPHTHALATE
     Indication: BACK PAIN
     Dosage: UNK
  22. ERYTHROMYCIN ETHYLSUCCINATE. [Suspect]
     Active Substance: ERYTHROMYCIN ETHYLSUCCINATE
     Indication: PSORIASIS
     Dosage: 400 MG, EVERY 6 HOURS
     Route: 048
     Dates: start: 20160203, end: 20160204
  23. LISINOPRIL. [Concomitant]
     Active Substance: LISINOPRIL
     Indication: ATRIAL FIBRILLATION
  24. ELIQUIS [Concomitant]
     Active Substance: APIXABAN
     Indication: ATRIAL FIBRILLATION
  25. MULTIVITAMINS [Concomitant]
     Active Substance: VITAMINS
     Indication: PRODUCT USED FOR UNKNOWN INDICATION
     Dosage: UNK

REACTIONS (3)
  - Product use issue [Unknown]
  - Back pain [Recovered/Resolved]
  - Abdominal pain upper [Recovered/Resolved]

NARRATIVE: CASE EVENT DATE: 20160203
